FAERS Safety Report 6674632-4 (Version None)
Quarter: 2010Q2

REPORT INFORMATION
  Report Type: 
  Country: None (occurrence: None)
  Receive Date: 20100409
  Receipt Date: 20100329
  Transmission Date: 20101027
  Serious: Yes (Hospitalization)
  Sender: FDA-Public Use
  Company Number: TW-PFIZER INC-2010040179

PATIENT
  Age: 59 Year
  Sex: Male
  Weight: 59 kg

DRUGS (13)
  1. BLINDED *NO SUBJECT DRUG [Suspect]
     Indication: PROSTATE CANCER
     Dosage: 37.5 MG, 1X/DAY
     Route: 048
     Dates: start: 20100201, end: 20100328
  2. BLINDED *PLACEBO [Suspect]
     Indication: PROSTATE CANCER
     Dosage: 37.5 MG, 1X/DAY
     Route: 048
     Dates: start: 20100201, end: 20100328
  3. BLINDED SUNITINIB MALATE [Suspect]
     Indication: PROSTATE CANCER
     Dosage: 37.5 MG, 1X/DAY
     Route: 048
     Dates: start: 20100201, end: 20100328
  4. PREDNISOLONE [Suspect]
     Indication: PROSTATE CANCER
     Dosage: 5 MG, 2X/DAY
     Route: 048
     Dates: start: 20100201, end: 20100328
  5. ZOLPIDEM [Concomitant]
     Indication: INSOMNIA
     Dosage: UNK
     Dates: start: 20100201
  6. ACETAMINOPHEN [Concomitant]
     Indication: HERPES ZOSTER
     Dosage: UNK
     Dates: start: 20100208, end: 20100327
  7. FOLIC ACID [Concomitant]
     Indication: ANAEMIA
     Dosage: UNK
     Dates: start: 20100212
  8. ZOLEDRONIC ACID [Concomitant]
     Indication: METASTASES TO BONE
     Dosage: UNK
     Dates: start: 20100222
  9. SENNOSIDE A+B [Concomitant]
     Indication: CONSTIPATION
     Dosage: UNK
     Dates: start: 20100222
  10. CEFADROXIL [Concomitant]
     Indication: HAEMATURIA
     Dosage: UNK
     Dates: start: 20100301
  11. TRANEXAMIC ACID [Concomitant]
     Indication: HAEMATURIA
     Dosage: UNK
     Dates: start: 20100301
  12. ULTRACET [Concomitant]
     Indication: BONE PAIN
     Dosage: UNK
     Dates: start: 20100301
  13. FENTANYL [Concomitant]
     Indication: BONE PAIN
     Dosage: UNK
     Dates: start: 20100319

REACTIONS (1)
  - DECREASED APPETITE [None]
